FAERS Safety Report 18607120 (Version 3)
Quarter: 2021Q1

REPORT INFORMATION
  Report Type: Spontaneous
  Country: HU (occurrence: HU)
  Receive Date: 20201212
  Receipt Date: 20210107
  Transmission Date: 20210419
  Serious: Yes (Other)
  Sender: FDA-Public Use
  Company Number: HU-ROCHE-2731187

PATIENT

DRUGS (1)
  1. AVASTIN [Suspect]
     Active Substance: BEVACIZUMAB
     Indication: EYE DISORDER
     Route: 065

REACTIONS (3)
  - Endophthalmitis [Unknown]
  - Off label use [Unknown]
  - Intentional product use issue [Unknown]
